FAERS Safety Report 16581644 (Version 1)
Quarter: 2019Q3

REPORT INFORMATION
  Report Type: Spontaneous
  Country: US (occurrence: US)
  Receive Date: 20190716
  Receipt Date: 20190716
  Transmission Date: 20191004
  Serious: No
  Sender: FDA-Public Use
  Company Number: US-US WORLDMEDS, LLC-USW201905-001021

PATIENT
  Age: 76 Year
  Sex: Male

DRUGS (8)
  1. XADAGO [Suspect]
     Active Substance: SAFINAMIDE MESYLATE
     Indication: PARKINSON^S DISEASE
     Dates: start: 20190419
  2. AMLODIPINE [Concomitant]
     Active Substance: AMLODIPINE BESYLATE
  3. XADAGO [Suspect]
     Active Substance: SAFINAMIDE MESYLATE
  4. ATORVASTATIN [Concomitant]
     Active Substance: ATORVASTATIN
  5. AMANTADINE. [Concomitant]
     Active Substance: AMANTADINE HYDROCHLORIDE
  6. ALEVE [Concomitant]
     Active Substance: NAPROXEN SODIUM
     Indication: PAIN
  7. VITAMINS [Concomitant]
     Active Substance: VITAMINS
  8. ASPIRIN. [Concomitant]
     Active Substance: ASPIRIN

REACTIONS (9)
  - Dyspepsia [Not Recovered/Not Resolved]
  - Aggression [Not Recovered/Not Resolved]
  - Product use issue [Unknown]
  - Insomnia [Not Recovered/Not Resolved]
  - Muscle spasms [Not Recovered/Not Resolved]
  - Therapeutic product effect incomplete [Unknown]
  - Hiccups [Not Recovered/Not Resolved]
  - Diaphragmatic spasm [Not Recovered/Not Resolved]
  - Tremor [Not Recovered/Not Resolved]
